FAERS Safety Report 25453305 (Version 1)
Quarter: 2025Q2

REPORT INFORMATION
  Report Type: Report from Study
  Country: US (occurrence: US)
  Receive Date: 20250618
  Receipt Date: 20250618
  Transmission Date: 20250717
  Serious: Yes (Other)
  Sender: ABBVIE
  Company Number: US-ABBVIE-6331664

PATIENT
  Age: 85 Year
  Sex: Female

DRUGS (1)
  1. VENETOCLAX [Suspect]
     Active Substance: VENETOCLAX
     Indication: Chronic lymphocytic leukaemia
     Dosage: 400 MILLIGRAM, LAST ADMIN DATE: 2025
     Route: 048
     Dates: start: 20250505

REACTIONS (7)
  - Loss of consciousness [Unknown]
  - Platelet count decreased [Unknown]
  - Blood sodium decreased [Unknown]
  - Fall [Unknown]
  - Nausea [Unknown]
  - Diarrhoea [Unknown]
  - Fatigue [Unknown]

NARRATIVE: CASE EVENT DATE: 20250101
